FAERS Safety Report 4315204-6 (Version None)
Quarter: 2004Q1

REPORT INFORMATION
  Report Type: 
  Country: None (occurrence: None)
  Receive Date: 20040309
  Receipt Date: 20040225
  Transmission Date: 20041129
  Serious: Yes (Death)
  Sender: FDA-Public Use
  Company Number: USA030435063

PATIENT
  Age: 92 Year
  Sex: Male
  Weight: 69 kg

DRUGS (17)
  1. FORTEO [Suspect]
     Indication: BACK PAIN
     Dates: start: 20030417
  2. FORTEO [Suspect]
     Indication: OSTEOPOROSIS
     Dates: start: 20030417
  3. AZMACORT [Concomitant]
  4. ATROVENT [Concomitant]
  5. CARDIZEM [Concomitant]
  6. FUROSEMIDE [Concomitant]
  7. ISOSORBIDE [Concomitant]
  8. LEVOTHROID [Concomitant]
  9. NITROPATCH (GLYCERYL TRINITRATE) [Concomitant]
  10. PLAVIX [Concomitant]
  11. PREDNISONE [Concomitant]
  12. SEPTRA [Concomitant]
  13. SEREVENT [Concomitant]
  14. SINGULAIR [Concomitant]
  15. ULTRACET [Concomitant]
  16. XOPENEX [Concomitant]
  17. ANTIBIOTIC [Concomitant]

REACTIONS (3)
  - COMA [None]
  - MARKEDLY REDUCED DIETARY INTAKE [None]
  - NAUSEA [None]
